FAERS Safety Report 7989806-X (Version None)
Quarter: 2011Q4

REPORT INFORMATION
  Report Type: 
  Country: None (occurrence: None)
  Receive Date: 20111219
  Receipt Date: 20101209
  Transmission Date: 20120403
  Serious: No
  Sender: FDA-Public Use
  Company Number: US-ASTRAZENECA-2010SE58637

PATIENT
  Age: 73 Year
  Sex: Male

DRUGS (8)
  1. NITEVITS [Concomitant]
  2. INSULIN [Concomitant]
     Indication: DIABETES MELLITUS
  3. LISINOPRIL [Concomitant]
     Indication: HYPERTENSION
  4. MAG OXIDE [Concomitant]
  5. REGLAN [Concomitant]
  6. ASPIRIN [Concomitant]
  7. CRESTOR [Suspect]
     Route: 048
     Dates: start: 20100101, end: 20100101
  8. PRILOSEC [Concomitant]

REACTIONS (1)
  - GYNAECOMASTIA [None]
